FAERS Safety Report 20775329 (Version 2)
Quarter: 2022Q3

REPORT INFORMATION
  Report Type: Report from Study
  Country: US (occurrence: US)
  Receive Date: 20220502
  Receipt Date: 20220913
  Transmission Date: 20221027
  Serious: No
  Sender: FDA-Public Use
  Company Number: US-INCYTE CORPORATION-2022IN002860

PATIENT

DRUGS (28)
  1. JAKAFI [Suspect]
     Active Substance: RUXOLITINIB
     Indication: Essential thrombocythaemia
     Dosage: 10 MILLIGRAM, BID
     Route: 065
     Dates: start: 20190904
  2. DICLOFENAC SODIUM [Concomitant]
     Active Substance: DICLOFENAC SODIUM
     Indication: Scar
     Dosage: PT12, 1 PATCH QD
     Route: 065
     Dates: start: 20180830
  3. NEURONTIN [Concomitant]
     Active Substance: GABAPENTIN
     Indication: Neuralgia
     Dosage: 100 MILLIGRAM, TID
     Route: 065
     Dates: start: 20180907
  4. CLIMARA [ESTRADIOL] [Concomitant]
     Indication: Blood oestrogen
     Dosage: 0.1MG/24 HR
     Route: 065
     Dates: start: 20180813
  5. VALTREX [Concomitant]
     Active Substance: VALACYCLOVIR HYDROCHLORIDE
     Indication: Viral infection
     Dosage: 1000 MILLIGRAM, QD
     Route: 065
     Dates: start: 20180813
  6. VIMPAT [Concomitant]
     Active Substance: LACOSAMIDE
     Indication: Nerve injury
     Dosage: 200 MILLIGRAM
     Route: 065
     Dates: start: 20180807
  7. PEGASYS [Concomitant]
     Active Substance: PEGINTERFERON ALFA-2A
     Indication: Essential thrombocythaemia
     Dosage: 0.25 MILLILITER (180 MCG/ML)
     Route: 065
     Dates: start: 20180426
  8. LOPRESSOR [Concomitant]
     Active Substance: METOPROLOL TARTRATE
     Indication: Blood pressure measurement
     Dosage: 25 MILLIGRAM
     Route: 065
     Dates: start: 20180224
  9. ZOFRAN [Concomitant]
     Active Substance: ONDANSETRON HYDROCHLORIDE
     Indication: Nausea
     Dosage: 8 MILLIGRAM
     Route: 065
     Dates: start: 20171107
  10. ZOFRAN [Concomitant]
     Active Substance: ONDANSETRON HYDROCHLORIDE
     Indication: Vomiting
     Dosage: 8 MILLIGRAM
     Route: 065
     Dates: start: 20200321, end: 20200322
  11. ZOLOFT [Concomitant]
     Active Substance: SERTRALINE HYDROCHLORIDE
     Indication: Anxiety
     Dosage: 100 MILLIGRAM
     Route: 065
     Dates: start: 20170211
  12. ACIPHEX [Concomitant]
     Active Substance: RABEPRAZOLE SODIUM
     Indication: Gastrooesophageal reflux disease
     Dosage: 20 MILLIGRAM, QD
     Route: 065
     Dates: start: 20161025
  13. ACIPHEX [Concomitant]
     Active Substance: RABEPRAZOLE SODIUM
     Indication: Oesophageal disorder
     Dosage: 20 MILLIGRAM, QD
     Route: 065
     Dates: start: 201802
  14. ATARAX [Concomitant]
     Active Substance: HYDROXYZINE HYDROCHLORIDE
     Indication: Pruritus
     Dosage: 50 MILLIGRAM, PRN
     Route: 065
     Dates: start: 20160930
  15. METHOTREXATE [Concomitant]
     Active Substance: METHOTREXATE
     Indication: Rheumatoid arthritis
     Dosage: 10 MILLIGRAM (2.5 X 4 TABLETS)
     Route: 065
     Dates: start: 20160901
  16. VITAMIN D2 [Concomitant]
     Active Substance: ERGOCALCIFEROL
     Indication: Vitamin supplementation
     Dosage: 50,000 UNIT
     Route: 065
     Dates: start: 20160727
  17. ACETAMINOPHEN AND CODEINE [Concomitant]
     Active Substance: ACETAMINOPHEN\CODEINE PHOSPHATE
     Indication: Pain
     Dosage: 300-60 MG, PRN
     Route: 065
     Dates: start: 20180907
  18. LIRAGLUTIDE [Concomitant]
     Active Substance: LIRAGLUTIDE
     Indication: Weight decreased
     Dosage: 3 MILLIGRAM, QD (3MG/0.5 ML (18 MG/3 ML))
     Route: 065
     Dates: start: 20171128
  19. FOLIC ACID [Concomitant]
     Active Substance: FOLIC ACID
     Indication: Vitamin supplementation
     Dosage: 1 MILLIGRAM, QD
     Route: 065
     Dates: start: 20180322
  20. ASPIRIN [Concomitant]
     Active Substance: ASPIRIN
     Indication: Pain
     Dosage: 81 MILLIGRAM, QD
     Route: 065
     Dates: start: 20180907
  21. ASPIRIN [Concomitant]
     Active Substance: ASPIRIN
     Indication: Coagulopathy
  22. REMERON [Concomitant]
     Active Substance: MIRTAZAPINE
     Indication: Depression
     Dosage: 15 MILLIGRAM
     Route: 065
     Dates: start: 20180907
  23. SHINGRIX [Concomitant]
     Active Substance: RECOMBINANT VARICELLA ZOSTER VIRUS (VZV) GLYCOPROTEIN E
     Indication: Herpes zoster
     Dosage: 0.5 MILLILITER
     Route: 065
     Dates: start: 20180907
  24. ZANAFLEX [Concomitant]
     Active Substance: TIZANIDINE HYDROCHLORIDE
     Indication: Muscle spasms
     Dosage: 24 MILLIGRAM
     Route: 065
     Dates: start: 20200321, end: 20200323
  25. LEVAQUIN [Concomitant]
     Active Substance: LEVOFLOXACIN
     Indication: Infection
     Dosage: 500 MILLIGRAM
     Route: 065
     Dates: start: 20200322, end: 20200323
  26. NUCYNTA [Concomitant]
     Active Substance: TAPENTADOL HYDROCHLORIDE
     Indication: Pain
     Dosage: 50 MILLIGRAM
     Route: 065
     Dates: start: 20200322, end: 20200326
  27. TYLENOL [Concomitant]
     Active Substance: ACETAMINOPHEN
     Indication: Pyrexia
     Dosage: 650 MILLIGRAM
     Route: 065
     Dates: start: 20200322, end: 20200326
  28. ZITHROMAX [Concomitant]
     Active Substance: AZITHROMYCIN DIHYDRATE
     Indication: Bacterial infection
     Dosage: 500 MILLIGRAM
     Route: 065
     Dates: start: 20201226, end: 20201227

REACTIONS (1)
  - Oral pain [Recovered/Resolved]

NARRATIVE: CASE EVENT DATE: 20210422
